FAERS Safety Report 18743619 (Version 2)
Quarter: 2021Q1

REPORT INFORMATION
  Report Type: Report from Study
  Country: US (occurrence: US)
  Receive Date: 20210115
  Receipt Date: 20210305
  Transmission Date: 20210419
  Serious: Yes (Death, Other)
  Sender: FDA-Public Use
  Company Number: US-ACADIA PHARMACEUTICALS INC.-ACA-2021-PIM-000038

PATIENT
  Age: 84 Year
  Sex: Female

DRUGS (14)
  1. VITAMINS NOS [Concomitant]
     Active Substance: VITAMINS
  2. NUPLAZID [Suspect]
     Active Substance: PIMAVANSERIN TARTRATE
     Indication: PARKINSON^S DISEASE
     Dosage: 34 MILLIGRAM, QD
     Route: 048
     Dates: start: 20201207, end: 202012
  3. DONEPEZIL. [Concomitant]
     Active Substance: DONEPEZIL
  4. ENTACAPONE. [Concomitant]
     Active Substance: ENTACAPONE
  5. LATANOPROST. [Concomitant]
     Active Substance: LATANOPROST
  6. LEVETIRACETAM. [Concomitant]
     Active Substance: LEVETIRACETAM
  7. TYLENOL [Concomitant]
     Active Substance: ACETAMINOPHEN
  8. RYTARY [Concomitant]
     Active Substance: CARBIDOPA\LEVODOPA
  9. NUPLAZID [Suspect]
     Active Substance: PIMAVANSERIN TARTRATE
     Indication: HALLUCINATION
  10. ARIPIPRAZOLE. [Concomitant]
     Active Substance: ARIPIPRAZOLE
  11. FUROSEMIDE. [Concomitant]
     Active Substance: FUROSEMIDE
  12. LEVOTHYROXINE. [Concomitant]
     Active Substance: LEVOTHYROXINE
  13. POTASSIUM [Concomitant]
     Active Substance: POTASSIUM
  14. VITAMIN C [Concomitant]
     Active Substance: ASCORBIC ACID

REACTIONS (1)
  - Death [Fatal]

NARRATIVE: CASE EVENT DATE: 20201231
